FAERS Safety Report 11926966 (Version 1)
Quarter: 2016Q1

REPORT INFORMATION
  Report Type: Spontaneous
  Country: US (occurrence: US)
  Receive Date: 20160119
  Receipt Date: 20160119
  Transmission Date: 20160526
  Serious: Yes (Hospitalization, Other)
  Sender: FDA-Public Use
  Company Number: US-JNJFOC-20160107755

PATIENT
  Age: 61 Year
  Sex: Female
  Weight: 81.65 kg

DRUGS (7)
  1. FOLIC ACID. [Concomitant]
     Active Substance: FOLIC ACID
     Route: 065
  2. METHOTREXATE [Concomitant]
     Active Substance: METHOTREXATE
     Route: 065
  3. COQ 10 [Concomitant]
     Active Substance: UBIDECARENONE
     Route: 065
  4. SIMPONI [Suspect]
     Active Substance: GOLIMUMAB
     Indication: RHEUMATOID ARTHRITIS
     Route: 058
     Dates: start: 20150610
  5. FISH OIL OMEGA 3 [Concomitant]
     Route: 065
  6. BIOTIN [Concomitant]
     Active Substance: BIOTIN
     Route: 065
  7. VITAMIN C COMPLEX [Concomitant]
     Route: 065

REACTIONS (8)
  - Rheumatoid arthritis [Recovered/Resolved]
  - Abasia [Recovered/Resolved]
  - Joint swelling [Unknown]
  - Drug ineffective [Unknown]
  - Back pain [Unknown]
  - Muscle strain [Unknown]
  - Hospitalisation [Recovered/Resolved]
  - Pain in extremity [Unknown]

NARRATIVE: CASE EVENT DATE: 201506
